FAERS Safety Report 11385795 (Version 4)
Quarter: 2015Q4

REPORT INFORMATION
  Report Type: Spontaneous
  Country: JP (occurrence: JP)
  Receive Date: 20150817
  Receipt Date: 20151020
  Transmission Date: 20160304
  Serious: Yes (Hospitalization, Other)
  Sender: FDA-Public Use
  Company Number: JP-ROCHE-1621843

PATIENT
  Age: 55 Year
  Sex: Male
  Weight: 77 kg

DRUGS (3)
  1. DIOVAN [Concomitant]
     Active Substance: VALSARTAN
     Dosage: UNCERTAIN AMOUNT OF 1 ONCE ADMINISTRATION, FRACTIONATION DOSE UNCERTAIN ?FREQUENCY, AND DOSE INTERV
     Route: 048
  2. MIRCERA [Suspect]
     Active Substance: METHOXY POLYETHYLENE GLYCOL-EPOETIN BETA
     Route: 058
     Dates: start: 20150511, end: 20150810
  3. MIRCERA [Suspect]
     Active Substance: METHOXY POLYETHYLENE GLYCOL-EPOETIN BETA
     Indication: NEPHROGENIC ANAEMIA
     Dosage: IT IS UNCERTAIN AND THE FRACTIONATION DOSE FREQUENCY IS THE DOSE INTERVAL UNCERTAIN
     Route: 058
     Dates: start: 20121011, end: 20150420

REACTIONS (2)
  - Aplasia pure red cell [Recovered/Resolved]
  - Cerebral infarction [Recovered/Resolved]

NARRATIVE: CASE EVENT DATE: 20150308
